FAERS Safety Report 6942864-3 (Version None)
Quarter: 2010Q3

REPORT INFORMATION
  Report Type: 
  Country: None (occurrence: None)
  Receive Date: 20100826
  Receipt Date: 20100813
  Transmission Date: 20110219
  Serious: Yes (Hospitalization)
  Sender: FDA-Public Use
  Company Number: DE-ELI_LILLY_AND_COMPANY-DE201007004299

PATIENT
  Sex: Female

DRUGS (7)
  1. CYMBALTA [Suspect]
     Indication: DEPRESSION
     Dosage: 30 MG, UNKNOWN
     Route: 048
     Dates: start: 20100622, end: 20100627
  2. CYMBALTA [Suspect]
     Dosage: 60 MG, UNKNOWN
     Route: 048
     Dates: start: 20100628, end: 20100705
  3. CYMBALTA [Suspect]
     Dosage: 90 MG, UNKNOWN
     Route: 048
     Dates: start: 20100706, end: 20100716
  4. ZOPICLON [Concomitant]
     Dosage: 7.5 MG, UNK
     Route: 048
     Dates: start: 20100705, end: 20100729
  5. FLUOXETINE [Concomitant]
     Dosage: UNK, UNKNOWN
     Route: 065
     Dates: end: 20100616
  6. MIRTAZAPIN [Concomitant]
     Dosage: UNK, UNKNOWN
     Route: 065
     Dates: start: 20100617, end: 20100620
  7. BALDRIAN-DISPERT [Concomitant]
     Dosage: UNK, UNKNOWN
     Route: 065
     Dates: start: 20100630, end: 20100704

REACTIONS (2)
  - BLOOD CREATINE PHOSPHOKINASE INCREASED [None]
  - BLOOD CREATINE PHOSPHOKINASE MB INCREASED [None]
